FAERS Safety Report 22240228 (Version 1)
Quarter: 2023Q2

REPORT INFORMATION
  Report Type: Spontaneous
  Country: US (occurrence: US)
  Receive Date: 20230421
  Receipt Date: 20230421
  Transmission Date: 20230722
  Serious: Yes (Other)
  Sender: FDA-Public Use
  Company Number: US-JNJFOC-20230433024

PATIENT

DRUGS (1)
  1. REMICADE [Suspect]
     Active Substance: INFLIXIMAB
     Indication: Rheumatoid arthritis
     Route: 041

REACTIONS (7)
  - Near death experience [Unknown]
  - Infusion related reaction [Unknown]
  - Pain [Unknown]
  - Labour pain [Unknown]
  - Hypertension [Unknown]
  - Chest pain [Unknown]
  - Dyspnoea [Unknown]
